FAERS Safety Report 6124329-4 (Version None)
Quarter: 2009Q1

REPORT INFORMATION
  Report Type: 
  Country: None (occurrence: None)
  Receive Date: 20090318
  Receipt Date: 20090318
  Transmission Date: 20090719
  Serious: Yes (Life-Threatening, Hospitalization, Disabling)
  Sender: FDA-Public Use
  Company Number: None

PATIENT
  Age: 39 Year
  Sex: Female
  Weight: 56.2 kg

DRUGS (9)
  1. DAPSONE [Suspect]
     Indication: PNEUMOCYSTIS JIROVECI PNEUMONIA
     Dosage: 100MG DAILY PO
     Route: 048
     Dates: start: 20090217, end: 20090304
  2. DAPSONE [Suspect]
     Indication: PROPHYLAXIS
     Dosage: 100MG DAILY PO
     Route: 048
     Dates: start: 20090217, end: 20090304
  3. CYCLOPHOSPHAMIDE [Concomitant]
  4. PREDNISONE [Concomitant]
  5. NIFEDIPINE [Concomitant]
  6. CARVEDILOL [Concomitant]
  7. LISINOPRIL [Concomitant]
  8. PERCOCET [Concomitant]
  9. SODIUM BICARBONATE [Concomitant]

REACTIONS (1)
  - METHAEMOGLOBINAEMIA [None]
